FAERS Safety Report 21212529 (Version 1)
Quarter: 2022Q3

REPORT INFORMATION
  Report Type: Spontaneous
  Country: US (occurrence: None)
  Receive Date: 20220812
  Receipt Date: 20220812
  Transmission Date: 20221027
  Serious: No
  Sender: FDA-Public Use
  Company Number: None

PATIENT
  Sex: Female

DRUGS (1)
  1. HUMIRA [Suspect]
     Active Substance: ADALIMUMAB
     Indication: Juvenile idiopathic arthritis
     Dosage: 20 MG EVERY 14 DAYS SUB-Q?
     Route: 058
     Dates: start: 201903

REACTIONS (2)
  - Drug specific antibody [None]
  - Loss of therapeutic response [None]
